FAERS Safety Report 12280027 (Version 3)
Quarter: 2016Q2

REPORT INFORMATION
  Report Type: Spontaneous
  Country: CH (occurrence: CH)
  Receive Date: 20160418
  Receipt Date: 20160428
  Transmission Date: 20160815
  Serious: Yes (Hospitalization, Other)
  Sender: FDA-Public Use
  Company Number: CH-009507513-1604CHE007106

PATIENT
  Age: 68 Year
  Sex: Male

DRUGS (6)
  1. IMMUNINE [Concomitant]
     Indication: HAEMOPHILIA
     Dosage: 2400E, EVERY 3 WEEKS
     Route: 042
  2. VITAMIN D3 [Concomitant]
     Active Substance: CHOLECALCIFEROL
     Indication: VITAMIN D DEFICIENCY
     Dosage: 10 DROPS, PER WEEK
     Route: 048
     Dates: start: 201404
  3. ISENTRESS [Suspect]
     Active Substance: RALTEGRAVIR POTASSIUM
     Indication: HIV INFECTION
     Dosage: 400 MG, BID
     Route: 048
     Dates: start: 201003
  4. BONVIVA [Concomitant]
     Active Substance: IBANDRONATE SODIUM
     Indication: OSTEOPOROSIS
     Dosage: 150 MG, ONCE PER MONTH
     Route: 048
     Dates: start: 201510
  5. KIVEXA [Concomitant]
     Active Substance: ABACAVIR SULFATE\LAMIVUDINE
     Indication: HIV INFECTION
     Dosage: 600/300 MG
     Route: 048
     Dates: start: 200012
  6. CORENITEN [Concomitant]
     Indication: HYPERTENSION
     Dosage: TOTAL DAILY DOSE 20/12.5 MG
     Route: 048
     Dates: start: 201510

REACTIONS (1)
  - Pulmonary embolism [Recovering/Resolving]

NARRATIVE: CASE EVENT DATE: 20160328
